FAERS Safety Report 5488307-0 (Version None)
Quarter: 2007Q4

REPORT INFORMATION
  Report Type: 
  Country: None (occurrence: None)
  Receive Date: 20071017
  Receipt Date: 20071015
  Transmission Date: 20080405
  Serious: Yes (Hospitalization)
  Sender: FDA-Public Use
  Company Number: SE-ASTRAZENECA-2007SE05487

PATIENT
  Age: 75 Year
  Sex: Female

DRUGS (12)
  1. ATACAND [Suspect]
     Indication: HYPERTENSION
     Route: 048
  2. IMDUR [Suspect]
     Indication: HYPERTENSION
     Route: 048
  3. SPIRIVA [Concomitant]
  4. SERTRALIN [Concomitant]
  5. FURIX [Concomitant]
  6. ATROVENT [Concomitant]
     Dosage: 0.25 MG/ML
  7. BAMBEC [Concomitant]
     Route: 048
  8. TROMBYL [Concomitant]
     Route: 048
  9. ACETYLCYSTEINE [Concomitant]
     Route: 048
  10. NEURONTIN [Concomitant]
  11. IDEOS [Concomitant]
     Dosage: 500 MG/400 IE
  12. NEXIUM [Concomitant]
     Route: 048

REACTIONS (2)
  - ANGINA UNSTABLE [None]
  - HYPOTENSION [None]
